FAERS Safety Report 25812269 (Version 4)
Quarter: 2025Q4

REPORT INFORMATION
  Report Type: Spontaneous
  Country: GB (occurrence: GB)
  Receive Date: 20250917
  Receipt Date: 20251111
  Transmission Date: 20260118
  Serious: No
  Sender: PFIZER
  Company Number: GB-PFIZER INC-202500180748

PATIENT
  Sex: Female

DRUGS (1)
  1. GENOTROPIN [Suspect]
     Active Substance: SOMATROPIN
     Indication: In vitro fertilisation
     Dosage: UNK

REACTIONS (4)
  - Incorrect dose administered by device [Unknown]
  - Device leakage [Unknown]
  - Product label issue [Unknown]
  - Off label use [Unknown]
